FAERS Safety Report 9420104 (Version 2)
Quarter: 2013Q3

REPORT INFORMATION
  Report Type: Spontaneous
  Country: FR (occurrence: FR)
  Receive Date: 20130725
  Receipt Date: 20130806
  Transmission Date: 20140515
  Serious: Yes (Life-Threatening, Hospitalization)
  Sender: FDA-Public Use
  Company Number: FR-GLAXOSMITHKLINE-B0908573A

PATIENT
  Age: 28 Year
  Sex: Male

DRUGS (3)
  1. LAMICTAL [Suspect]
     Indication: BIPOLAR DISORDER
     Dosage: 100MG TWICE PER DAY
     Route: 048
     Dates: start: 20130612, end: 20130628
  2. QUETIAPINE [Suspect]
     Indication: PRODUCT USED FOR UNKNOWN INDICATION
     Dosage: 100MG PER DAY
     Route: 065
     Dates: start: 20130612, end: 20130628
  3. SERESTA [Concomitant]
     Dosage: 5MG THREE TIMES PER DAY
     Route: 065
     Dates: start: 20130612, end: 20130628

REACTIONS (11)
  - Stevens-Johnson syndrome [Recovering/Resolving]
  - Rash maculo-papular [Recovering/Resolving]
  - Pyrexia [Unknown]
  - Back pain [Unknown]
  - Dermatitis exfoliative [Recovering/Resolving]
  - Nikolsky^s sign [Unknown]
  - Mucous membrane disorder [Unknown]
  - Tonsillitis [Unknown]
  - Hepatocellular injury [Unknown]
  - Conjunctivitis [Unknown]
  - Incorrect drug administration rate [Unknown]
